FAERS Safety Report 15353472 (Version 4)
Quarter: 2019Q1

REPORT INFORMATION
  Report Type: Report from Study
  Country: US (occurrence: US)
  Receive Date: 20180905
  Receipt Date: 20190201
  Transmission Date: 20190417
  Serious: Yes (Hospitalization)
  Sender: FDA-Public Use
  Company Number: US-ACTELION-A-NJ2018-174707

PATIENT
  Age: 67 Year
  Sex: Male
  Weight: 104.31 kg

DRUGS (6)
  1. UPTRAVI [Suspect]
     Active Substance: SELEXIPAG
     Dosage: 1200 MCG, UNK
     Route: 048
  2. UPTRAVI [Suspect]
     Active Substance: SELEXIPAG
     Dosage: 400 MCG, BID
     Route: 048
  3. WARFARIN [Concomitant]
     Active Substance: WARFARIN
  4. UPTRAVI [Suspect]
     Active Substance: SELEXIPAG
     Indication: PULMONARY ARTERIAL HYPERTENSION
     Dosage: 600 MCG, BID
     Route: 048
     Dates: start: 20190116, end: 20190121
  5. UPTRAVI [Suspect]
     Active Substance: SELEXIPAG
     Dosage: 1600 MCG, BID
     Route: 048
  6. ADEMPAS [Concomitant]
     Active Substance: RIOCIGUAT

REACTIONS (7)
  - Somnolence [Unknown]
  - Malaise [Unknown]
  - Ear discomfort [Unknown]
  - Enterococcal infection [Unknown]
  - Balance disorder [Unknown]
  - Diarrhoea [Unknown]
  - Photophobia [Unknown]
